FAERS Safety Report 22303582 (Version 2)
Quarter: 2023Q2

REPORT INFORMATION
  Report Type: Spontaneous
  Country: IT (occurrence: IT)
  Receive Date: 20230510
  Receipt Date: 20230511
  Transmission Date: 20230722
  Serious: Yes (Hospitalization, Other)
  Sender: FDA-Public Use
  Company Number: IT-MLMSERVICE-20230425-4247099-1

PATIENT
  Age: 70 Year
  Sex: Male

DRUGS (4)
  1. METHYLPREDNISOLONE SODIUM SUCCINATE [Suspect]
     Active Substance: METHYLPREDNISOLONE SODIUM SUCCINATE
     Indication: Glomerulonephritis minimal lesion
     Dosage: 500 MG, 1X/DAY
     Route: 042
  2. PREDNISONE [Suspect]
     Active Substance: PREDNISONE
     Indication: Glomerulonephritis minimal lesion
     Dosage: 50 MG, 1X/DAY
     Route: 048
  3. PREDNISONE [Suspect]
     Active Substance: PREDNISONE
     Dosage: 50 MG, 1X/DAY
     Route: 048
  4. PREDNISONE [Suspect]
     Active Substance: PREDNISONE
     Dosage: GRADUALLY REDUCING (TAPERING PROCESS)
     Route: 048

REACTIONS (1)
  - Cutaneous nocardiosis [Recovered/Resolved]
